FAERS Safety Report 14937532 (Version 4)
Quarter: 2019Q1

REPORT INFORMATION
  Report Type: Spontaneous
  Country: JP (occurrence: JP)
  Receive Date: 20180525
  Receipt Date: 20190130
  Transmission Date: 20190417
  Serious: Yes (Hospitalization, Other)
  Sender: FDA-Public Use
  Company Number: JP-AMGEN-JPNSP2018070622

PATIENT
  Age: 66 Year
  Sex: Female

DRUGS (1)
  1. PRALIA [Suspect]
     Active Substance: DENOSUMAB
     Indication: OSTEOPOROSIS
     Dosage: 60 MG, Q6MO
     Route: 058
     Dates: start: 20140901, end: 20170930

REACTIONS (3)
  - Decreased appetite [Unknown]
  - Atypical femur fracture [Recovering/Resolving]
  - Femur fracture [Unknown]

NARRATIVE: CASE EVENT DATE: 201711
